FAERS Safety Report 9068541 (Version 1)
Quarter: 2013Q1

REPORT INFORMATION
  Report Type: Spontaneous
  Country: CN (occurrence: CN)
  Receive Date: 20130206
  Receipt Date: 20130206
  Transmission Date: 20140127
  Serious: Yes (Other)
  Sender: FDA-Public Use
  Company Number: PHHY2013CN009101

PATIENT
  Age: 29 Year
  Sex: Male

DRUGS (1)
  1. BROMOCRIPTINE [Suspect]
     Dosage: GRADUALLY INCREASED TO 15 MG/DAY

REACTIONS (1)
  - Brain stem syndrome [Unknown]
